FAERS Safety Report 19933584 (Version 6)
Quarter: 2022Q3

REPORT INFORMATION
  Report Type: Report from Study
  Country: US (occurrence: US)
  Receive Date: 20211008
  Receipt Date: 20220823
  Transmission Date: 20221026
  Serious: Yes (Hospitalization)
  Sender: FDA-Public Use
  Company Number: US-NOVARTISTESTPH-NVSC2021US230794

PATIENT
  Age: 66 Year
  Sex: Female

DRUGS (1)
  1. ENTRESTO [Suspect]
     Active Substance: SACUBITRIL\VALSARTAN
     Indication: Cardiomyopathy
     Dosage: 50 MG (24/26 MG)
     Route: 048
     Dates: start: 20211208

REACTIONS (7)
  - Myocardial infarction [Unknown]
  - Acute myocardial infarction [Recovering/Resolving]
  - Back pain [Unknown]
  - Gastroenteritis viral [Unknown]
  - Blood potassium increased [Recovering/Resolving]
  - Fatigue [Unknown]
  - Product use in unapproved indication [Unknown]

NARRATIVE: CASE EVENT DATE: 20220108
